FAERS Safety Report 5259229-5 (Version None)
Quarter: 2007Q1

REPORT INFORMATION
  Report Type: 
  Country: None (occurrence: None)
  Receive Date: 20070308
  Receipt Date: 20070228
  Transmission Date: 20070707
  Serious: Yes (Life-Threatening)
  Sender: FDA-Public Use
  Company Number: JP-PFIZER INC-2007014232

PATIENT
  Age: 52 Year
  Sex: Male

DRUGS (2)
  1. LIPITOR [Suspect]
     Indication: HYPERLIPIDAEMIA
     Dosage: DAILY DOSE:10MG
     Route: 048
     Dates: start: 20051213, end: 20070220
  2. URINORM [Suspect]
     Indication: GOUT
     Dosage: DAILY DOSE:50MG
     Route: 048
     Dates: start: 19970114, end: 20070220

REACTIONS (1)
  - AGRANULOCYTOSIS [None]
